FAERS Safety Report 16395588 (Version 5)
Quarter: 2019Q3

REPORT INFORMATION
  Report Type: Report from Study
  Country: US (occurrence: US)
  Receive Date: 20190605
  Receipt Date: 20190930
  Transmission Date: 20191004
  Serious: Yes (Hospitalization, Other)
  Sender: FDA-Public Use
  Company Number: US-ACTELION-A-US2018-170353

PATIENT
  Age: 39 Year
  Sex: Female

DRUGS (2)
  1. OPSUMIT [Suspect]
     Active Substance: MACITENTAN
     Indication: PULMONARY HYPERTENSION
     Dosage: 10 MG, QD
     Route: 048
     Dates: start: 20171209
  2. ORENITRAM [Suspect]
     Active Substance: TREPROSTINIL
     Indication: PRODUCT USED FOR UNKNOWN INDICATION
     Dosage: UNK
     Route: 065
     Dates: start: 201909, end: 201909

REACTIONS (7)
  - Dyspnoea [Unknown]
  - Cough [Not Recovered/Not Resolved]
  - Therapeutic response decreased [Unknown]
  - Hospitalisation [Unknown]
  - Back pain [Not Recovered/Not Resolved]
  - Lung adenocarcinoma [Unknown]
  - Anaemia [Unknown]

NARRATIVE: CASE EVENT DATE: 20180310
